FAERS Safety Report 20430169 (Version 1)
Quarter: 2022Q1

REPORT INFORMATION
  Report Type: Report from Study
  Country: FR (occurrence: FR)
  Receive Date: 20220204
  Receipt Date: 20220204
  Transmission Date: 20220424
  Serious: Yes (Hospitalization)
  Sender: FDA-Public Use
  Company Number: FR-SERVIER-S20004114

PATIENT

DRUGS (8)
  1. ONCASPAR [Suspect]
     Active Substance: PEGASPARGASE
     Indication: Acute lymphocytic leukaemia
     Dosage: 1463 IU, UNK
     Route: 042
     Dates: start: 20190408, end: 20190527
  2. DEXAMETHASONE [Suspect]
     Active Substance: DEXAMETHASONE
     Indication: Acute lymphocytic leukaemia
     Dosage: 7 MG ON D33
     Route: 048
     Dates: start: 20190401, end: 20190527
  3. TN UNSPECIFIED [Concomitant]
     Indication: Acute lymphocytic leukaemia
     Dosage: 1.7 MG ON D36
     Route: 042
     Dates: start: 20190401, end: 20190527
  4. TN UNSPECIFIED [Concomitant]
     Indication: Acute lymphocytic leukaemia
     Dosage: 15 MG ON D30
     Route: 037
     Dates: start: 20190402, end: 20190527
  5. TN UNSPECIFIED [Concomitant]
     Indication: Acute lymphocytic leukaemia
     Dosage: 50 MG ON D43
     Route: 048
     Dates: start: 20190401, end: 20190527
  6. TN UNSPECIFIED [Concomitant]
     Indication: Acute lymphocytic leukaemia
     Dosage: 27.5 MG ON D43
     Route: 048
     Dates: start: 20190408, end: 20190527
  7. TN UNSPECIFIED [Concomitant]
     Indication: Prophylaxis
     Dosage: 800 MG
     Route: 048
     Dates: start: 20190401
  8. TN UNSPECIFIED [Concomitant]
     Indication: Hypothyroidism
     Dosage: 25 ?G
     Route: 048

REACTIONS (1)
  - Steroid diabetes [Recovered/Resolved]

NARRATIVE: CASE EVENT DATE: 20190520
